FAERS Safety Report 13363982 (Version 5)
Quarter: 2017Q3

REPORT INFORMATION
  Report Type: Spontaneous
  Country: GB (occurrence: GB)
  Receive Date: 20170323
  Receipt Date: 20170811
  Transmission Date: 20171127
  Serious: Yes (Other)
  Sender: FDA-Public Use
  Company Number: PHFR2017GB001873

PATIENT
  Age: 83 Year
  Sex: Female

DRUGS (2)
  1. PROMETAX [Suspect]
     Active Substance: RIVASTIGMINE
     Dosage: 6.9 MG, QD PATCH 7.5 (CM2)
     Route: 062
  2. PROMETAX [Suspect]
     Active Substance: RIVASTIGMINE
     Indication: DEMENTIA ALZHEIMER^S TYPE
     Dosage: 4.6 MG, QD PATCH 5 (CM2)
     Route: 062

REACTIONS (3)
  - Drug administration error [Not Recovered/Not Resolved]
  - Communication disorder [Unknown]
  - Overdose [Unknown]

NARRATIVE: CASE EVENT DATE: 201703
